FAERS Safety Report 7717312-6 (Version None)
Quarter: 2011Q3

REPORT INFORMATION
  Report Type: 
  Country: None (occurrence: None)
  Receive Date: 20110830
  Receipt Date: 20110819
  Transmission Date: 20111222
  Serious: Yes (Death, Hospitalization)
  Sender: FDA-Public Use
  Company Number: JP-BAYER-200914623BYL

PATIENT
  Age: 71 Year
  Sex: Male

DRUGS (4)
  1. ALDACTONE [Suspect]
     Indication: ASCITES
     Dosage: DAILY DOSE 100 MG
     Route: 048
  2. NEXAVAR [Suspect]
     Dosage: 600 MG (DAILY DOSE), , ORAL
     Route: 048
     Dates: start: 20091030, end: 20091110
  3. NEXAVAR [Suspect]
     Indication: HEPATIC NEOPLASM MALIGNANT
     Dosage: 400 MG, QD
     Route: 048
     Dates: start: 20091021
  4. LASIX [Suspect]
     Indication: ASCITES
     Dosage: DAILY DOSE 40 MG
     Route: 048

REACTIONS (5)
  - CACHEXIA [None]
  - RENAL FAILURE ACUTE [None]
  - HYPERKALAEMIA [None]
  - DIARRHOEA [None]
  - HEPATIC NEOPLASM MALIGNANT [None]
